FAERS Safety Report 23034394 (Version 1)
Quarter: 2023Q4

REPORT INFORMATION
  Report Type: Spontaneous
  Country: US (occurrence: US)
  Receive Date: 20231005
  Receipt Date: 20231005
  Transmission Date: 20240110
  Serious: Yes (Life-Threatening, Hospitalization)
  Sender: FDA-Public Use
  Company Number: US-SUN PHARMACEUTICAL INDUSTRIES LTD-2023R1-411205

PATIENT
  Age: 16 Year
  Sex: Female

DRUGS (1)
  1. BUPROPION [Suspect]
     Active Substance: BUPROPION
     Indication: Product used for unknown indication
     Dosage: 9300 MILLIGRAM
     Route: 048

REACTIONS (5)
  - Confusional state [Unknown]
  - Suicide attempt [Unknown]
  - Overdose [Unknown]
  - Tachycardia [Unknown]
  - Agitation [Unknown]
